FAERS Safety Report 7937120-0 (Version None)
Quarter: 2011Q4

REPORT INFORMATION
  Report Type: 
  Country: None (occurrence: None)
  Receive Date: 20111123
  Receipt Date: 20111111
  Transmission Date: 20120403
  Serious: Yes (Other)
  Sender: FDA-Public Use
  Company Number: JP-UCBSA-045651

PATIENT
  Sex: Female

DRUGS (2)
  1. KEPPRA [Suspect]
     Indication: EPILEPSY
     Dosage: TOTAL DAILY DOSE: 1000 MG
     Route: 048
     Dates: start: 20111001
  2. VALPROATE SODIUM [Suspect]
     Route: 048

REACTIONS (1)
  - BLOOD POTASSIUM DECREASED [None]
